FAERS Safety Report 4699569-1 (Version None)
Quarter: 2005Q2

REPORT INFORMATION
  Report Type: 
  Country: None (occurrence: None)
  Receive Date: 20050622
  Receipt Date: 20050607
  Transmission Date: 20051028
  Serious: Yes (Hospitalization)
  Sender: FDA-Public Use
  Company Number: 11465

PATIENT
  Age: 73 Year
  Sex: Female

DRUGS (9)
  1. METHOTREXATE [Suspect]
     Indication: RHEUMATOID ARTHRITIS
     Dosage: 15 MG, IM
     Route: 030
     Dates: start: 19970701, end: 20050407
  2. INFLIXIMAB [Suspect]
     Indication: RHEUMATOID ARTHRITIS
     Dosage: 3 MG/KG, IV
     Route: 042
     Dates: start: 20020424, end: 20050119
  3. METHYPRESNISOLONE [Concomitant]
  4. FOLIC ACID [Concomitant]
  5. CALCIUM CARBONATE/CITRIC ACID [Concomitant]
  6. CLASTEON [Concomitant]
  7. SULINDAC [Concomitant]
  8. PYRIDOXINE HCL/THYAMINE HCL [Concomitant]
  9. SALMETEROL [Concomitant]

REACTIONS (3)
  - FAECAL OCCULT BLOOD POSITIVE [None]
  - HAEMOGLOBIN DECREASED [None]
  - INTESTINAL ADENOCARCINOMA [None]
